FAERS Safety Report 20423612 (Version 2)
Quarter: 2024Q2

REPORT INFORMATION
  Report Type: Spontaneous
  Country: JP (occurrence: JP)
  Receive Date: 20220203
  Receipt Date: 20240418
  Transmission Date: 20240716
  Serious: Yes (Hospitalization, Other)
  Sender: FDA-Public Use
  Company Number: JP-SANOFI-2017SA268989

PATIENT
  Age: 19 Month
  Sex: Female
  Weight: 8.8 kg

DRUGS (35)
  1. SABRIL [Suspect]
     Active Substance: VIGABATRIN
     Indication: Infantile spasms
     Dosage: 600 MG, BID
     Route: 048
     Dates: start: 20161008, end: 20161012
  2. SABRIL [Suspect]
     Active Substance: VIGABATRIN
     Dosage: 150 MG, BID
     Route: 048
     Dates: start: 20160921, end: 20160925
  3. SABRIL [Suspect]
     Active Substance: VIGABATRIN
     Dosage: 300 MG, BID
     Route: 048
     Dates: start: 20160926, end: 20161003
  4. SABRIL [Suspect]
     Active Substance: VIGABATRIN
     Dosage: 450 MG, BID
     Route: 048
     Dates: start: 20161004, end: 20161007
  5. SABRIL [Suspect]
     Active Substance: VIGABATRIN
     Dosage: 375 MG, BID
     Route: 048
     Dates: start: 20161013, end: 20170211
  6. SABRIL [Suspect]
     Active Substance: VIGABATRIN
     Dosage: 300 MG, BID
     Route: 048
     Dates: start: 20170212, end: 20170218
  7. SABRIL [Suspect]
     Active Substance: VIGABATRIN
     Dosage: 225 MG, BID
     Route: 048
     Dates: start: 20170219, end: 20170224
  8. SABRIL [Suspect]
     Active Substance: VIGABATRIN
     Dosage: 150 MG, BID
     Route: 048
     Dates: start: 20170225, end: 20170309
  9. SABRIL [Suspect]
     Active Substance: VIGABATRIN
     Dosage: 75 MG, BID
     Route: 048
     Dates: start: 20170310, end: 20170316
  10. SABRIL [Suspect]
     Active Substance: VIGABATRIN
     Dosage: 150 MG, BID
     Route: 048
     Dates: start: 20170804, end: 20171005
  11. SABRIL [Suspect]
     Active Substance: VIGABATRIN
     Dosage: 225 MG, BID
     Route: 048
     Dates: start: 20171006, end: 20171012
  12. SABRIL [Suspect]
     Active Substance: VIGABATRIN
     Dosage: 300 MG, BID
     Route: 048
     Dates: start: 20171013, end: 20171116
  13. SABRIL [Suspect]
     Active Substance: VIGABATRIN
     Dosage: 375 MG, BID
     Route: 048
     Dates: start: 20171117, end: 20180729
  14. SABRIL [Suspect]
     Active Substance: VIGABATRIN
     Dosage: 400 MG, BID
     Route: 048
     Dates: start: 20180730
  15. LEVETIRACETAM [Concomitant]
     Active Substance: LEVETIRACETAM
     Indication: Infantile spasms
     Dosage: 900 MG/DAY
     Route: 048
     Dates: end: 20170803
  16. LEVETIRACETAM [Concomitant]
     Active Substance: LEVETIRACETAM
     Dosage: 700 MG/DAY
     Route: 048
     Dates: start: 20170804, end: 20170922
  17. LEVETIRACETAM [Concomitant]
     Active Substance: LEVETIRACETAM
     Dosage: 700 MG/DAY
     Route: 065
     Dates: start: 20170923
  18. ZONISAMIDE [Concomitant]
     Active Substance: ZONISAMIDE
     Indication: Infantile spasms
     Dosage: 80 MG/DAY
     Route: 048
  19. TRICHLORMETHIAZIDE [Concomitant]
     Active Substance: TRICHLORMETHIAZIDE
     Indication: Product used for unknown indication
     Dosage: 0.4 MG/DAY
     Route: 048
  20. LEVOTHYROXINE SODIUM [Concomitant]
     Active Substance: LEVOTHYROXINE SODIUM
     Indication: Product used for unknown indication
     Dosage: 7 MCG/DAY
     Route: 048
     Dates: end: 20161023
  21. CARBOCYSTEINE [Concomitant]
     Active Substance: CARBOCYSTEINE
     Indication: Product used for unknown indication
     Dosage: 200 MG/DAY
     Route: 048
     Dates: end: 20161213
  22. CARBOCYSTEINE [Concomitant]
     Active Substance: CARBOCYSTEINE
     Dosage: 200 MG/DAY
     Route: 048
     Dates: start: 20161214, end: 20180727
  23. CARBOCYSTEINE [Concomitant]
     Active Substance: CARBOCYSTEINE
     Dosage: 200 MG/DAY
     Route: 065
     Dates: start: 20180728, end: 20181028
  24. CARBOCYSTEINE [Concomitant]
     Active Substance: CARBOCYSTEINE
     Dosage: 200 MG/DAY
     Route: 065
     Dates: start: 20181029
  25. TAURINE [Concomitant]
     Active Substance: TAURINE
     Indication: Prophylaxis
     Dosage: 0.3 G/DAY
     Route: 048
     Dates: start: 20160921, end: 20170316
  26. TAURINE [Concomitant]
     Active Substance: TAURINE
     Indication: Investigation
     Dosage: 0.3 G/DAY
     Route: 048
     Dates: start: 20170804, end: 20170922
  27. TAURINE [Concomitant]
     Active Substance: TAURINE
     Dosage: 0.3 G/DAY
     Route: 065
     Dates: start: 20170923
  28. VITAMINS [Concomitant]
     Active Substance: VITAMINS
     Indication: Prophylaxis
     Dosage: UNK
     Route: 065
     Dates: start: 20181010
  29. VITAMINS [Concomitant]
     Active Substance: VITAMINS
     Indication: Investigation
     Route: 065
  30. CARTINE L [Concomitant]
     Indication: Investigation
     Route: 065
     Dates: start: 20181010
  31. CARTINE L [Concomitant]
     Indication: Prophylaxis
     Route: 065
  32. URALYT URATO [Concomitant]
     Indication: Product used for unknown indication
     Dosage: UNK
     Route: 065
     Dates: start: 20181029, end: 20181230
  33. URALYT URATO [Concomitant]
     Dosage: UNK
     Route: 065
     Dates: start: 20181231, end: 20190204
  34. URALYT URATO [Concomitant]
     Dosage: UNK
     Route: 065
     Dates: start: 20190205
  35. ALLOPURINOL [Concomitant]
     Active Substance: ALLOPURINOL
     Indication: Product used for unknown indication
     Route: 065
     Dates: start: 20181029

REACTIONS (5)
  - Pneumonia aspiration [Recovered/Resolved]
  - Retinogram abnormal [Recovered/Resolved]
  - Delayed dark adaptation [Recovered/Resolved]
  - Delayed light adaptation [Recovered/Resolved]
  - Somnolence [Recovered/Resolved]

NARRATIVE: CASE EVENT DATE: 20161012
